FAERS Safety Report 23213069 (Version 1)
Quarter: 2023Q4

REPORT INFORMATION
  Report Type: Spontaneous
  Country: PT (occurrence: PT)
  Receive Date: 20231121
  Receipt Date: 20231121
  Transmission Date: 20240110
  Serious: Yes (Other)
  Sender: FDA-Public Use
  Company Number: None

PATIENT
  Age: 29 Year
  Sex: Male

DRUGS (3)
  1. EMTRICITABINE\TENOFOVIR [Suspect]
     Active Substance: EMTRICITABINE\TENOFOVIR
     Indication: Prophylaxis against HIV infection
     Dosage: 1 DOSAGE FORMS DAILY; 1 TABLET PER DAY. FOR ACTIVE INGREDIENT TENOFOVIR, DISOPROXIL PHOSPHATE THE ST
     Dates: start: 20231024
  2. APIDRA [Concomitant]
     Active Substance: INSULIN GLULISINE
     Indication: Product used for unknown indication
     Dosage: UNKNOWN DOSE AND DOSAGE
  3. TRESIBA ? [Concomitant]
     Indication: Product used for unknown indication
     Dosage: UNKNOWN DOSE AND DOSAGE

REACTIONS (3)
  - Pruritus [Recovered/Resolved]
  - Burning sensation [Recovered/Resolved]
  - Rash [Recovered/Resolved]

NARRATIVE: CASE EVENT DATE: 20231024
